FAERS Safety Report 7983220-9 (Version None)
Quarter: 2011Q4

REPORT INFORMATION
  Report Type: 
  Country: None (occurrence: None)
  Receive Date: 20111215
  Receipt Date: 20111213
  Transmission Date: 20120403
  Serious: Yes (Death)
  Sender: FDA-Public Use
  Company Number: GB-ABBOTT-11P-167-0882886-00

PATIENT
  Sex: Male

DRUGS (1)
  1. HUMIRA [Suspect]
     Indication: RHEUMATOID ARTHRITIS
     Route: 058
     Dates: start: 20041012, end: 20050115

REACTIONS (4)
  - CELLULITIS [None]
  - RENAL FAILURE [None]
  - MYOCARDIAL ISCHAEMIA [None]
  - SEPSIS [None]
